FAERS Safety Report 16811512 (Version 1)
Quarter: 2019Q3

REPORT INFORMATION
  Report Type: Spontaneous
  Country: US (occurrence: US)
  Receive Date: 20190916
  Receipt Date: 20190916
  Transmission Date: 20191005
  Serious: No
  Sender: FDA-Public Use
  Company Number: US-SA-2019SA250665

PATIENT
  Age: 13 Year
  Sex: Male

DRUGS (1)
  1. DUPIXENT [Suspect]
     Active Substance: DUPILUMAB
     Indication: ECZEMA
     Dosage: 600 MG, QOW
     Route: 058
     Dates: start: 20190806

REACTIONS (2)
  - Device failure [Unknown]
  - Product dose omission [Unknown]

NARRATIVE: CASE EVENT DATE: 20190903
